FAERS Safety Report 20552684 (Version 1)
Quarter: 2022Q1

REPORT INFORMATION
  Report Type: Spontaneous
  Country: US (occurrence: US)
  Receive Date: 20220304
  Receipt Date: 20220304
  Transmission Date: 20220423
  Serious: No
  Sender: FDA-Public Use
  Company Number: US-009507513-2203USA001034

PATIENT

DRUGS (2)
  1. CUBICIN [Suspect]
     Active Substance: DAPTOMYCIN
     Indication: Stomatococcal infection
     Dosage: UNK
  2. LINEZOLID [Concomitant]
     Active Substance: LINEZOLID
     Indication: Stomatococcal infection
     Dosage: UNK

REACTIONS (1)
  - Product use in unapproved indication [Unknown]
